FAERS Safety Report 8071518-8 (Version None)
Quarter: 2012Q1

REPORT INFORMATION
  Report Type: 
  Country: None (occurrence: None)
  Receive Date: 20120125
  Receipt Date: 20120119
  Transmission Date: 20120608
  Serious: Yes (Other)
  Sender: FDA-Public Use
  Company Number: US-ASTRAZENECA-2012SE04174

PATIENT
  Age: 62 Year
  Sex: Female

DRUGS (3)
  1. DIURETIC [Concomitant]
  2. NEXIUM [Suspect]
     Route: 048
  3. ENTOCORT EC [Suspect]
     Route: 048

REACTIONS (2)
  - CONVULSION [None]
  - HYPERSENSITIVITY [None]
